FAERS Safety Report 5824280-0 (Version None)
Quarter: 2008Q3

REPORT INFORMATION
  Report Type: 
  Country: None (occurrence: None)
  Receive Date: 20080728
  Receipt Date: 20080714
  Transmission Date: 20090109
  Serious: Yes (Hospitalization, Other)
  Sender: FDA-Public Use
  Company Number: JP-ROCHE-576023

PATIENT
  Sex: Female
  Weight: 19 kg

DRUGS (3)
  1. TAMIFLU [Suspect]
     Dosage: FORM REPORTED AS DRY SYRUP 3%.
     Route: 048
     Dates: start: 20060320, end: 20060320
  2. CEFIXIME CHEWABLE [Suspect]
     Indication: PYREXIA
     Route: 048
     Dates: start: 20060321
  3. CEFOTIAM HYDROCHLORIDE [Suspect]
     Indication: PYREXIA
     Route: 042
     Dates: start: 20060404, end: 20060408

REACTIONS (3)
  - HAEMATURIA [None]
  - RENAL IMPAIRMENT [None]
  - URTICARIA [None]
